FAERS Safety Report 12055576 (Version 1)
Quarter: 2016Q1

REPORT INFORMATION
  Report Type: Spontaneous
  Country: US (occurrence: US)
  Receive Date: 20160209
  Receipt Date: 20160209
  Transmission Date: 20160526
  Serious: Yes (Death, Other)
  Sender: FDA-Public Use
  Company Number: US-BAYER-2016-019870

PATIENT

DRUGS (6)
  1. ACETYLSALICYLIC ACID (} 100 MG) [Suspect]
     Active Substance: ASPIRIN
     Route: 064
  2. PROGESTERONE. [Concomitant]
     Active Substance: PROGESTERONE
     Route: 064
  3. ACETYLSALICYLIC ACID (} 100 MG) [Suspect]
     Active Substance: ASPIRIN
     Route: 064
  4. HEPARIN [Concomitant]
     Active Substance: HEPARIN SODIUM
     Route: 064
  5. PROGESTERONE. [Concomitant]
     Active Substance: PROGESTERONE
     Route: 064
  6. HEPARIN [Concomitant]
     Active Substance: HEPARIN SODIUM
     Route: 064

REACTIONS (3)
  - Foetal growth restriction [Fatal]
  - Talipes [None]
  - Foetal exposure during pregnancy [None]
